FAERS Safety Report 7288178-6 (Version None)
Quarter: 2011Q1

REPORT INFORMATION
  Report Type: 
  Country: None (occurrence: None)
  Receive Date: 20110211
  Receipt Date: 20110131
  Transmission Date: 20110831
  Serious: Yes (Other)
  Sender: FDA-Public Use
  Company Number: FR-JNJFOC-20110201678

PATIENT
  Age: 37 Year
  Sex: Female

DRUGS (6)
  1. EFFEXOR [Concomitant]
     Indication: PRODUCT USED FOR UNKNOWN INDICATION
  2. RISPERDAL [Suspect]
     Route: 048
  3. RISPERDAL [Suspect]
     Indication: SCHIZOPHRENIA
     Dosage: INITIATED SINCE LESS THAN 1 MONTH
     Route: 048
  4. RISPERDAL [Suspect]
     Route: 048
  5. RISPERDAL [Suspect]
     Dosage: SINCE 2/3 DAYS
     Route: 048
  6. ANXIOLYTIC [Concomitant]
     Indication: ANXIETY

REACTIONS (5)
  - GALACTORRHOEA [None]
  - INTENTIONAL DRUG MISUSE [None]
  - PITUITARY TUMOUR BENIGN [None]
  - ANXIETY [None]
  - VOMITING [None]
